FAERS Safety Report 10707143 (Version 1)
Quarter: 2015Q1

REPORT INFORMATION
  Report Type: Spontaneous
  Country: US (occurrence: None)
  Receive Date: 20150112
  Receipt Date: 20150112
  Transmission Date: 20150721
  Serious: No
  Sender: FDA-Public Use
  Company Number: None

PATIENT
  Age: 4 Year
  Sex: Male
  Weight: 15.2 kg

DRUGS (1)
  1. KEPPRA [Suspect]
     Active Substance: LEVETIRACETAM
     Indication: EPILEPSY
     Dosage: G-TUBE
     Dates: start: 20141209, end: 20150108

REACTIONS (7)
  - Head banging [None]
  - Scratch [None]
  - Aggression [None]
  - Abnormal behaviour [None]
  - Screaming [None]
  - Bite [None]
  - Self injurious behaviour [None]

NARRATIVE: CASE EVENT DATE: 20150101
